FAERS Safety Report 13101104 (Version 1)
Quarter: 2017Q1

REPORT INFORMATION
  Report Type: Spontaneous
  Country: US (occurrence: US)
  Receive Date: 20170110
  Receipt Date: 20170110
  Transmission Date: 20170428
  Serious: No
  Sender: FDA-Public Use
  Company Number: US-BAYER-2017-004417

PATIENT
  Age: 13 Year
  Sex: Female

DRUGS (7)
  1. CLARITIN-D 24 HOUR [Suspect]
     Active Substance: LORATADINE\PSEUDOEPHEDRINE SULFATE
     Indication: NASAL CONGESTION
  2. FLONASE [Concomitant]
     Active Substance: FLUTICASONE PROPIONATE
  3. CLARITIN-D 24 HOUR [Suspect]
     Active Substance: LORATADINE\PSEUDOEPHEDRINE SULFATE
     Indication: HYPERSENSITIVITY
     Dosage: 1 DF, PRN
     Route: 048
  4. ALEVE [Concomitant]
     Active Substance: NAPROXEN SODIUM
  5. CLARITIN-D 24 HOUR [Suspect]
     Active Substance: LORATADINE\PSEUDOEPHEDRINE SULFATE
     Indication: NASOPHARYNGITIS
  6. MELATONIN [Concomitant]
     Active Substance: MELATONIN
  7. MICROGENICS PROBIOTIC 8 [Concomitant]
     Active Substance: LACTOBACILLUS ACIDOPHILUS

REACTIONS (2)
  - Nasal congestion [Unknown]
  - Product use issue [Recovered/Resolved]

NARRATIVE: CASE EVENT DATE: 20170108
